FAERS Safety Report 4433091-2 (Version None)
Quarter: 2004Q3

REPORT INFORMATION
  Report Type: 
  Country: None (occurrence: None)
  Receive Date: 20040823
  Receipt Date: 20040806
  Transmission Date: 20050211
  Serious: Yes (Death)
  Sender: FDA-Public Use
  Company Number: SP00311

PATIENT
  Age: 33 Year
  Sex: Male
  Weight: 91.173 kg

DRUGS (1)
  1. COLAZAL [Suspect]
     Indication: CROHN'S DISEASE
     Dosage: 2.25 G/TID, ORAL
     Route: 048
     Dates: start: 20040608, end: 20040617

REACTIONS (1)
  - CARDIAC FAILURE [None]
